FAERS Safety Report 20728802 (Version 1)
Quarter: 2022Q2

REPORT INFORMATION
  Report Type: Spontaneous
  Country: CA (occurrence: CA)
  Receive Date: 20220420
  Receipt Date: 20220420
  Transmission Date: 20220720
  Serious: Yes (Disabling, Other)
  Sender: FDA-Public Use
  Company Number: CA-SA-SAC20220415000443

PATIENT
  Age: 44 Year
  Sex: Female
  Weight: 68 kg

DRUGS (4)
  1. KEVZARA [Suspect]
     Active Substance: SARILUMAB
     Indication: Rheumatoid arthritis
     Dosage: UNK
  2. ARAVA [Suspect]
     Active Substance: LEFLUNOMIDE
     Indication: Rheumatoid arthritis
     Dosage: UNK
  3. HYDROXYCHLOROQUINE [Suspect]
     Active Substance: HYDROXYCHLOROQUINE
     Indication: Rheumatoid arthritis
     Dosage: 400 MG, QD
     Route: 048
  4. LEFLUNOMIDE [Suspect]
     Active Substance: LEFLUNOMIDE
     Indication: Product used for unknown indication
     Dosage: UNK

REACTIONS (54)
  - Abdominal discomfort [Unknown]
  - Alopecia [Unknown]
  - Arthropathy [Unknown]
  - Asthma [Unknown]
  - Autoimmune disorder [Unknown]
  - Blister [Unknown]
  - Chest pain [Unknown]
  - Condition aggravated [Unknown]
  - Confusional state [Unknown]
  - Deep vein thrombosis postoperative [Unknown]
  - Discomfort [Unknown]
  - Drug hypersensitivity [Unknown]
  - Duodenal ulcer perforation [Unknown]
  - Dyspnoea [Unknown]
  - Fatigue [Unknown]
  - Folliculitis [Unknown]
  - Gait inability [Unknown]
  - Gastrointestinal disorder [Unknown]
  - Glossodynia [Unknown]
  - Helicobacter infection [Unknown]
  - Hepatic enzyme increased [Unknown]
  - Impaired healing [Unknown]
  - Infection [Unknown]
  - Infusion related reaction [Unknown]
  - Irritable bowel syndrome [Unknown]
  - Lower respiratory tract infection [Unknown]
  - Musculoskeletal stiffness [Unknown]
  - Nasopharyngitis [Unknown]
  - Pemphigus [Unknown]
  - Pericarditis [Unknown]
  - Peripheral swelling [Unknown]
  - Pruritus [Unknown]
  - Pyrexia [Unknown]
  - Road traffic accident [Unknown]
  - Sinusitis [Unknown]
  - Sleep disorder due to general medical condition, insomnia type [Unknown]
  - Contusion [Unknown]
  - Stomatitis [Unknown]
  - Swelling [Unknown]
  - Synovitis [Unknown]
  - Systemic lupus erythematosus [Unknown]
  - Urticaria [Unknown]
  - Weight increased [Unknown]
  - Hand deformity [Unknown]
  - Lower limb fracture [Unknown]
  - Muscle injury [Unknown]
  - Rheumatoid arthritis [Unknown]
  - Rash [Unknown]
  - Wound [Unknown]
  - Drug intolerance [Unknown]
  - Drug ineffective [Unknown]
  - Therapy non-responder [Unknown]
  - Maternal exposure during pregnancy [Unknown]
  - Treatment failure [Unknown]
